FAERS Safety Report 25055391 (Version 2)
Quarter: 2025Q2

REPORT INFORMATION
  Report Type: Spontaneous
  Country: GB (occurrence: GB)
  Receive Date: 20250308
  Receipt Date: 20250521
  Transmission Date: 20250717
  Serious: Yes (Other)
  Sender: TAKEDA
  Company Number: GB-TAKEDA-2025TUS023472

PATIENT

DRUGS (3)
  1. LIVTENCITY [Suspect]
     Active Substance: MARIBAVIR
     Indication: Cytomegalovirus viraemia
     Dosage: 200 MILLIGRAM, BID
  2. TACROLIMUS [Concomitant]
     Active Substance: TACROLIMUS
     Indication: Immunosuppression
  3. TACROLIMUS [Concomitant]
     Active Substance: TACROLIMUS

REACTIONS (1)
  - Renal injury [Recovering/Resolving]
